FAERS Safety Report 9839997 (Version 1)
Quarter: 2013Q4

REPORT INFORMATION
  Report Type: Spontaneous
  Country: US (occurrence: None)
  Receive Date: 20131206
  Receipt Date: 20131206
  Transmission Date: 20140711
  Serious: Yes (Hospitalization, Other)
  Sender: FDA-Public Use
  Company Number: 369112

PATIENT
  Age: 70 Year
  Sex: Female

DRUGS (2)
  1. NOVOLOG FLEXPEN (INSULIN ASPART) SOLUTION FOR INJECTION, 100U/ML [Suspect]
     Indication: TYPE 2 DIABETES MELLITUS
     Dosage: 4 U IN THE AM, 4U IN THE PM
     Route: 058
  2. LANTUS (INSULIN GLARGINE) [Suspect]
     Dosage: 30 U AT BEDTIME,
     Route: 058

REACTIONS (5)
  - Blood glucose increased [None]
  - Oropharyngeal pain [None]
  - Sinus disorder [None]
  - Joint swelling [None]
  - Anal pruritus [None]
